FAERS Safety Report 5903480-5 (Version None)
Quarter: 2008Q3

REPORT INFORMATION
  Report Type: 
  Country: None (occurrence: None)
  Receive Date: 20080919
  Receipt Date: 20080625
  Transmission Date: 20090109
  Serious: No
  Sender: FDA-Public Use
  Company Number: US-WYE-H04750108

PATIENT
  Age: 72 Year
  Sex: Female
  Weight: 59.02 kg

DRUGS (2)
  1. PRISTIQ [Suspect]
     Indication: DYSTHYMIC DISORDER
     Dosage: 50 MG 1X PER 1 DAY, ORAL ; 50 MG 1X PER 1 TOT, ORAL
     Route: 048
     Dates: start: 20080101, end: 20080101
  2. PRISTIQ [Suspect]
     Indication: DYSTHYMIC DISORDER
     Dosage: 50 MG 1X PER 1 DAY, ORAL ; 50 MG 1X PER 1 TOT, ORAL
     Route: 048
     Dates: start: 20080601

REACTIONS (2)
  - FEELING ABNORMAL [None]
  - MALAISE [None]
